FAERS Safety Report 26175837 (Version 1)
Quarter: 2025Q4

REPORT INFORMATION
  Report Type: Spontaneous
  Country: JP (occurrence: JP)
  Receive Date: 20251218
  Receipt Date: 20251218
  Transmission Date: 20260117
  Serious: Yes (Other)
  Sender: ALEXION PHARMACEUTICALS
  Company Number: JP-AstraZeneca-CH-01015049A

PATIENT
  Age: 9 Decade

DRUGS (1)
  1. SYMBICORT [Suspect]
     Active Substance: BUDESONIDE\FORMOTEROL FUMARATE DIHYDRATE
     Route: 065

REACTIONS (6)
  - Treatment noncompliance [Unknown]
  - Cerebral infarction [Unknown]
  - Hepatitis fulminant [Unknown]
  - Drug ineffective [Unknown]
  - Cough [Unknown]
  - Laryngeal inflammation [Unknown]
